FAERS Safety Report 6032766-1 (Version None)
Quarter: 2009Q1

REPORT INFORMATION
  Report Type: 
  Country: None (occurrence: None)
  Receive Date: 20090107
  Receipt Date: 20090107
  Transmission Date: 20090719
  Serious: Yes (Hospitalization)
  Sender: FDA-Public Use
  Company Number: None

PATIENT
  Age: 51 Year
  Sex: Male
  Weight: 81.6475 kg

DRUGS (2)
  1. ARIPIPRAZOLE [Suspect]
     Dosage: ARIPIPRAZOLE 1 X DAY PO
     Route: 048
     Dates: start: 20081111, end: 20081203
  2. LITHIUM 900MG [Suspect]
     Indication: BIPOLAR DISORDER
     Dosage: LITHIUM 1X DAY PO
     Route: 048
     Dates: start: 19880101, end: 20080101

REACTIONS (7)
  - ANXIETY [None]
  - DEHYDRATION [None]
  - DISORIENTATION [None]
  - INSOMNIA [None]
  - NEUROLEPTIC MALIGNANT SYNDROME [None]
  - PARKINSON'S DISEASE [None]
  - TARDIVE DYSKINESIA [None]
